FAERS Safety Report 24840643 (Version 2)
Quarter: 2025Q1

REPORT INFORMATION
  Report Type: Spontaneous
  Country: US (occurrence: US)
  Receive Date: 20250114
  Receipt Date: 20250123
  Transmission Date: 20250409
  Serious: No
  Sender: MYLAN
  Company Number: US-MYLANLABS-2025M1002589

PATIENT
  Age: 44 Year
  Sex: Male
  Weight: 81.65 kg

DRUGS (2)
  1. VIAGRA [Suspect]
     Active Substance: SILDENAFIL CITRATE
     Indication: Cardiac disorder
     Route: 048
  2. ATORVASTATIN [Concomitant]
     Active Substance: ATORVASTATIN
     Indication: Blood cholesterol
     Route: 065

REACTIONS (6)
  - Erection increased [Not Recovered/Not Resolved]
  - Dizziness [Recovering/Resolving]
  - Flushing [Not Recovered/Not Resolved]
  - Off label use [Unknown]
  - Accidental overdose [Unknown]
  - Product physical issue [Unknown]

NARRATIVE: CASE EVENT DATE: 20250107
